FAERS Safety Report 15784450 (Version 1)
Quarter: 2019Q1

REPORT INFORMATION
  Report Type: Spontaneous
  Country: DE (occurrence: DE)
  Receive Date: 20190103
  Receipt Date: 20190103
  Transmission Date: 20190417
  Serious: Yes (Other)
  Sender: FDA-Public Use
  Company Number: DE-ACCORD-099194

PATIENT
  Age: 1 Day
  Sex: Male
  Weight: 2.5 kg

DRUGS (7)
  1. BISOPROLOL [Suspect]
     Active Substance: BISOPROLOL
     Indication: PRODUCT USED FOR UNKNOWN INDICATION
     Dosage: 5 (MG/D) / INITIAL 5MG/D, DOSAGE REDUCTION FROM WEEK 13+3 TO 2.5MG/D
     Route: 064
  2. MENOGON [Concomitant]
     Active Substance: MENOTROPINS
     Route: 064
  3. FAMENITA [Concomitant]
     Active Substance: PROGESTERONE
     Dosage: 200 (MG/D)
     Route: 064
  4. METHYLDOPA. [Suspect]
     Active Substance: METHYLDOPA
     Indication: PRODUCT USED FOR UNKNOWN INDICATION
     Dosage: 1000 (MG/D )/ INITIAL 500MG/D, SLOW DOSAGE INCREASE TO 1000MG/D
     Route: 064
  5. HUMALOG [Concomitant]
     Active Substance: INSULIN LISPRO
  6. METFORMIN [Concomitant]
     Active Substance: METFORMIN HYDROCHLORIDE
     Dosage: 1100 (MG/D )/ 0-250-850 MG/D
     Route: 064
  7. FOLIO FORTE [Concomitant]
     Active Substance: FOLIC ACID\VITAMINS

REACTIONS (2)
  - Small for dates baby [Recovered/Resolved]
  - Foetal exposure during pregnancy [Unknown]

NARRATIVE: CASE EVENT DATE: 20171113
